FAERS Safety Report 7489066-2 (Version None)
Quarter: 2011Q2

REPORT INFORMATION
  Report Type: 
  Country: None (occurrence: None)
  Receive Date: 20110518
  Receipt Date: 20110510
  Transmission Date: 20111010
  Serious: Yes (Death)
  Sender: FDA-Public Use
  Company Number: US-CELGENEUS-163-21880-11032526

PATIENT
  Sex: Male

DRUGS (7)
  1. DIGOXIN [Concomitant]
     Indication: ATRIAL FIBRILLATION
  2. COREG [Concomitant]
     Dosage: 6.25 MILLIGRAM
     Route: 065
  3. MIDODRINE HYDROCHLORIDE [Concomitant]
     Dosage: 5 MILLIGRAM
     Route: 065
  4. LIBRIUM [Concomitant]
     Dosage: 25 MILLIGRAM
     Route: 065
  5. DIGOXIN [Concomitant]
     Dosage: .25 MILLIGRAM
     Route: 065
  6. REVLIMID [Suspect]
     Dosage: 5 MILLIGRAM
     Route: 048
     Dates: start: 20101202
  7. LISINOPRIL [Concomitant]
     Dosage: 5 MILLIGRAM
     Route: 065

REACTIONS (1)
  - INFECTIVE EXACERBATION OF CHRONIC OBSTRUCTIVE AIRWAYS DISEASE [None]
